FAERS Safety Report 7926346-8 (Version None)
Quarter: 2011Q4

REPORT INFORMATION
  Report Type: 
  Country: None (occurrence: None)
  Receive Date: 20111118
  Receipt Date: 20111114
  Transmission Date: 20120403
  Serious: No
  Sender: FDA-Public Use
  Company Number: US-BIOGENIDEC-2011BI037892

PATIENT
  Sex: Female

DRUGS (6)
  1. AVONEX [Concomitant]
     Indication: MULTIPLE SCLEROSIS
     Route: 030
     Dates: end: 20050120
  2. AMPYRA [Concomitant]
     Indication: GAIT DISTURBANCE
  3. TYSABRI [Suspect]
     Route: 042
     Dates: start: 20090714, end: 20100405
  4. TYSABRI [Suspect]
     Indication: MULTIPLE SCLEROSIS
     Route: 042
     Dates: start: 20100816, end: 20110805
  5. TYSABRI [Suspect]
     Route: 042
     Dates: start: 20070313, end: 20080821
  6. AVONEX [Concomitant]
     Route: 030

REACTIONS (5)
  - FACE INJURY [None]
  - LACERATION [None]
  - FALL [None]
  - FATIGUE [None]
  - DRUG INEFFECTIVE [None]
